FAERS Safety Report 5256977-8 (Version None)
Quarter: 2007Q1

REPORT INFORMATION
  Report Type: 
  Country: None (occurrence: None)
  Receive Date: 20070307
  Receipt Date: 20070302
  Transmission Date: 20070707
  Serious: Yes (Other)
  Sender: FDA-Public Use
  Company Number: US-BRISTOL-MYERS SQUIBB COMPANY-13699152

PATIENT
  Age: 51 Year
  Sex: Female
  Weight: 49 kg

DRUGS (9)
  1. REYATAZ [Suspect]
     Dates: start: 20060301
  2. VIDEX [Concomitant]
  3. EPZICOM [Concomitant]
  4. FUZEON [Concomitant]
  5. NORVIR [Concomitant]
  6. BENTYL [Concomitant]
  7. ZOLOFT [Concomitant]
  8. ALLEGRA [Concomitant]
  9. DARUNAVIR [Concomitant]

REACTIONS (1)
  - HEPATOTOXICITY [None]
